FAERS Safety Report 16531917 (Version 2)
Quarter: 2019Q3

REPORT INFORMATION
  Report Type: Spontaneous
  Country: US (occurrence: US)
  Receive Date: 20190705
  Receipt Date: 20190708
  Transmission Date: 20191004
  Serious: No
  Sender: FDA-Public Use
  Company Number: US-GLAXOSMITHKLINE-US2019AMR120118

PATIENT
  Sex: Female

DRUGS (1)
  1. ADVAIR DISKUS [Suspect]
     Active Substance: FLUTICASONE PROPIONATE\SALMETEROL XINAFOATE
     Indication: PRODUCT USED FOR UNKNOWN INDICATION
     Dosage: UNK
     Route: 065
     Dates: start: 1999

REACTIONS (6)
  - Somnambulism [Unknown]
  - Fall [Unknown]
  - Arthritis [Unknown]
  - Pain [Unknown]
  - Gait disturbance [Unknown]
  - Limb injury [Unknown]

NARRATIVE: CASE EVENT DATE: 2017
